FAERS Safety Report 7714873-8 (Version None)
Quarter: 2011Q3

REPORT INFORMATION
  Report Type: 
  Country: None (occurrence: None)
  Receive Date: 20110822
  Receipt Date: 20110804
  Transmission Date: 20111222
  Serious: Yes (Death, Other)
  Sender: FDA-Public Use
  Company Number: 2011MA011474

PATIENT
  Age: 30 Year

DRUGS (6)
  1. DIAZEPAM [Suspect]
  2. METHAMPHETAMINE HYDROCHLORIDE [Suspect]
  3. BUPRENORPHINE [Suspect]
  4. NORDIAZEPAM (NO PREF. NAME) [Suspect]
  5. METHADONE HCL [Suspect]
  6. OXYCODONE HCL [Suspect]

REACTIONS (11)
  - CORONARY ARTERY DISEASE [None]
  - STUPOR [None]
  - SNORING [None]
  - PULMONARY CONGESTION [None]
  - RESPIRATORY DEPRESSION [None]
  - MULTIPLE DRUG OVERDOSE [None]
  - TOXICITY TO VARIOUS AGENTS [None]
  - ASPIRATION [None]
  - PULMONARY OEDEMA [None]
  - PNEUMONIA [None]
  - MYOCARDIAL ISCHAEMIA [None]
